FAERS Safety Report 7280020-2 (Version None)
Quarter: 2011Q1

REPORT INFORMATION
  Report Type: 
  Country: None (occurrence: None)
  Receive Date: 20110208
  Receipt Date: 20110126
  Transmission Date: 20110831
  Serious: Yes (Hospitalization)
  Sender: FDA-Public Use
  Company Number: ES-ELI_LILLY_AND_COMPANY-ES201011000950

PATIENT
  Sex: Female

DRUGS (9)
  1. BILINA [Concomitant]
     Dosage: UNK, AS NEEDED
     Route: 047
  2. HIDROSALURETIL [Concomitant]
     Indication: HYPERTENSION
     Dosage: UNK, EACH MORNING
     Route: 048
  3. EBASTINE [Concomitant]
     Indication: HYPERSENSITIVITY
     Dosage: UNK, EACH EVENING
     Route: 048
  4. CARBOMER [Concomitant]
     Indication: EYE DISORDER
     Dosage: ONE DROP, EACH EVENING
     Route: 047
  5. PAROXETINE HCL [Concomitant]
     Indication: DEPRESSION
     Dosage: 50 MG, EACH MORNING
     Route: 048
  6. VISCOFRESH [Concomitant]
     Dosage: IF DRYNESS IN EYE OCCURS, EYE DROPS
     Route: 047
  7. FORTEO [Suspect]
     Indication: OSTEOPOROSIS
     Dosage: 20 UG, DAILY (1/D)
     Route: 058
     Dates: start: 20101021
  8. IDEOS [Concomitant]
     Indication: BLOOD CALCIUM
     Dosage: UNK, 2/D
     Route: 048
  9. LORMETAZEPAM [Concomitant]
     Indication: SLEEP DISORDER
     Dosage: 2 MG, EACH EVENING
     Route: 048

REACTIONS (3)
  - FALL [None]
  - VISUAL IMPAIRMENT [None]
  - UPPER LIMB FRACTURE [None]
